FAERS Safety Report 9975019 (Version 1)
Quarter: 2014Q1

REPORT INFORMATION
  Report Type: Report from Study
  Country: US (occurrence: US)
  Receive Date: 20140306
  Receipt Date: 20140306
  Transmission Date: 20141002
  Serious: No
  Sender: FDA-Public Use
  Company Number: US-ABBVIE-13P-163-1161062-00

PATIENT
  Age: 56 Year
  Sex: Male

DRUGS (6)
  1. HUMIRA [Suspect]
     Indication: ANKYLOSING SPONDYLITIS
     Dates: start: 2011
  2. DEPAKOTE [Concomitant]
     Indication: MENTAL DISORDER
  3. ZYPREXA [Concomitant]
     Indication: HALLUCINATION, AUDITORY
  4. VICODIN [Concomitant]
     Indication: PRODUCT USED FOR UNKNOWN INDICATION
  5. COGENTIN [Concomitant]
     Indication: MENTAL DISORDER
  6. HALDOL [Concomitant]
     Indication: MENTAL DISORDER

REACTIONS (2)
  - Injection site papule [Recovering/Resolving]
  - Injection site haemorrhage [Recovered/Resolved]
